FAERS Safety Report 13668059 (Version 1)
Quarter: 2017Q2

REPORT INFORMATION
  Report Type: Spontaneous
  Country: US (occurrence: US)
  Receive Date: 20170619
  Receipt Date: 20170619
  Transmission Date: 20170830
  Serious: Yes (Hospitalization, Disabling, Other)
  Sender: FDA-Public Use
  Company Number: None

PATIENT
  Age: 38 Year
  Sex: Female
  Weight: 90.9 kg

DRUGS (1)
  1. LORAZEPAM. [Suspect]
     Active Substance: LORAZEPAM
     Indication: ANXIETY
     Dosage: ?          QUANTITY:120 TABLET(S);?
     Route: 048
     Dates: start: 20101115, end: 20160104

REACTIONS (38)
  - Drug ineffective [None]
  - Dizziness [None]
  - Hallucination, olfactory [None]
  - Hyperhidrosis [None]
  - Photophobia [None]
  - Loss of personal independence in daily activities [None]
  - Condition aggravated [None]
  - Withdrawal syndrome [None]
  - Abdominal distension [None]
  - Intrusive thoughts [None]
  - Suicidal ideation [None]
  - Hyperaesthesia [None]
  - Palpitations [None]
  - Rash [None]
  - Suicidal behaviour [None]
  - Migraine [None]
  - Thinking abnormal [None]
  - Akathisia [None]
  - Psychotic disorder [None]
  - Abasia [None]
  - Impaired driving ability [None]
  - Hyperacusis [None]
  - Vision blurred [None]
  - Phobia [None]
  - Food allergy [None]
  - Anxiety [None]
  - Neuralgia [None]
  - Seizure like phenomena [None]
  - Insomnia [None]
  - Diplopia [None]
  - Tongue discomfort [None]
  - Skin burning sensation [None]
  - Skin odour abnormal [None]
  - Post-traumatic stress disorder [None]
  - Migraine with aura [None]
  - Visual impairment [None]
  - Exercise tolerance decreased [None]
  - Pollakiuria [None]

NARRATIVE: CASE EVENT DATE: 20170103
